FAERS Safety Report 4645473-4 (Version None)
Quarter: 2005Q2

REPORT INFORMATION
  Report Type: 
  Country: None (occurrence: None)
  Receive Date: 20050426
  Receipt Date: 20050118
  Transmission Date: 20051028
  Serious: Yes (Hospitalization, Other)
  Sender: FDA-Public Use
  Company Number: US-MERCK-0501USA03073

PATIENT
  Sex: Female
  Weight: 135 kg

DRUGS (8)
  1. ASPIRIN [Concomitant]
     Route: 065
  2. LASIX [Concomitant]
     Route: 065
  3. [THERAPY UNSPECIFIED] [Concomitant]
     Route: 065
  4. PROCARDIA [Concomitant]
     Route: 065
     Dates: start: 19780702, end: 20050201
  5. CAPOTEN [Concomitant]
     Route: 048
     Dates: start: 19750101
  6. [THERAPY UNSPECIFIED] [Concomitant]
     Route: 065
  7. VIOXX [Suspect]
     Indication: ARTHRALGIA
     Route: 048
     Dates: start: 20010101, end: 20030101
  8. TOPROL-XL [Concomitant]
     Route: 065
     Dates: start: 19780702, end: 20050201

REACTIONS (23)
  - ADVERSE EVENT [None]
  - ANGINA PECTORIS [None]
  - ASTHENIA [None]
  - BLOOD CHOLESTEROL INCREASED [None]
  - CARDIAC FAILURE CONGESTIVE [None]
  - CARDIAC MURMUR [None]
  - CEREBROVASCULAR ACCIDENT [None]
  - COAGULOPATHY [None]
  - DEEP VEIN THROMBOSIS [None]
  - DEPRESSION [None]
  - DYSPNOEA [None]
  - HAND DEFORMITY [None]
  - HEART DISEASE CONGENITAL [None]
  - HEART RATE ABNORMAL [None]
  - HIGH DENSITY LIPOPROTEIN DECREASED [None]
  - HYPOXIA [None]
  - LOW DENSITY LIPOPROTEIN INCREASED [None]
  - OBESITY [None]
  - OEDEMA PERIPHERAL [None]
  - PAIN IN EXTREMITY [None]
  - RHEUMATOID ARTHRITIS [None]
  - SLEEP DISORDER [None]
  - THROMBOSIS [None]
